FAERS Safety Report 19653652 (Version 1)
Quarter: 2021Q3

REPORT INFORMATION
  Report Type: Spontaneous
  Country: PK (occurrence: PK)
  Receive Date: 20210804
  Receipt Date: 20210804
  Transmission Date: 20211014
  Serious: Yes (Other)
  Sender: FDA-Public Use
  Company Number: PK-VALIDUS PHARMACEUTICALS LLC-PK-VDP-2021-000249

PATIENT
  Age: 30 Year
  Sex: Female

DRUGS (1)
  1. CLAFORAN [Suspect]
     Active Substance: CEFOTAXIME SODIUM
     Indication: PROPHYLAXIS
     Dosage: 1 GRAM, BID, 2 DAYS
     Route: 042

REACTIONS (3)
  - Exposure during pregnancy [Unknown]
  - Wound infection [Unknown]
  - Drug ineffective [Unknown]
